FAERS Safety Report 7964233-X (Version None)
Quarter: 2011Q4

REPORT INFORMATION
  Report Type: 
  Country: None (occurrence: None)
  Receive Date: 20111121
  Receipt Date: 20110907
  Transmission Date: 20120403
  Serious: No
  Sender: FDA-Public Use
  Company Number: 1000023650

PATIENT
  Sex: Male

DRUGS (16)
  1. VIIBRYD [Suspect]
     Indication: ANXIETY
     Dosage: 10 MG (10 MG,1 IN 1 D),ORAL ; 20 MG (20 MG,1 IN 1 D),ORAL
     Route: 048
     Dates: start: 20110801
  2. VIIBRYD [Suspect]
     Indication: DEPRESSION
     Dosage: 10 MG (10 MG,1 IN 1 D),ORAL ; 20 MG (20 MG,1 IN 1 D),ORAL
     Route: 048
     Dates: start: 20110801
  3. VIIBRYD [Suspect]
     Indication: PERSONALITY DISORDER
     Dosage: 10 MG (10 MG,1 IN 1 D),ORAL ; 20 MG (20 MG,1 IN 1 D),ORAL
     Route: 048
     Dates: start: 20110801
  4. BUSPAR (BUSPIRONE HYDROCHLORIDE) (BUSPIRONE HYDROCHLORIDE) [Concomitant]
  5. PROTONIX (PANTOPRAZOLE SODIUM SESQUIHYDRATE) (PANTOPRAZOLE SODIUM SESQ [Concomitant]
  6. BENEFIBER (BENEFIBER) (BENEFIBER) [Concomitant]
  7. ASPIRIN [Concomitant]
  8. ACIDOPHILUS (LACTOBACILLUS ACIDOPHILUS) (LACTOBACILLUS ACIDOPHILUS) [Concomitant]
  9. MULTIVITAMIN (NOS) (MULTIVITAMIN (NOS)) (MULTIVITAMIN (NOS)) [Concomitant]
  10. MIRALAX (POLYETHYLENE GLYCOL) (POLYETHYLENE GLYCOL) [Concomitant]
  11. METFORMIN HCL [Concomitant]
  12. VIIBRYD [Suspect]
     Indication: DEPRESSION
     Dosage: 40 MG (40 MG,1 IN 1 D),ORAL
     Route: 048
  13. VIIBRYD [Suspect]
     Indication: ANXIETY
     Dosage: 40 MG (40 MG,1 IN 1 D),ORAL
     Route: 048
  14. VIIBRYD [Suspect]
     Indication: PERSONALITY DISORDER
     Dosage: 40 MG (40 MG,1 IN 1 D),ORAL
     Route: 048
  15. LISINOPRIL [Concomitant]
  16. VICTOZA (LORAGLUTIDE) (LORAGLUTIDE) [Concomitant]

REACTIONS (2)
  - MUSCLE TWITCHING [None]
  - DIARRHOEA [None]
